FAERS Safety Report 12323722 (Version 2)
Quarter: 2016Q2

REPORT INFORMATION
  Report Type: Report from Study
  Country: US (occurrence: US)
  Receive Date: 20160502
  Receipt Date: 20160506
  Transmission Date: 20160815
  Serious: Yes (Death)
  Sender: FDA-Public Use
  Company Number: US-ACTELION-A-US2015-120257

PATIENT
  Age: 74 Year
  Sex: Male

DRUGS (4)
  1. RIOCIGUAT [Suspect]
     Active Substance: RIOCIGUAT
     Indication: PRODUCT USED FOR UNKNOWN INDICATION
     Dosage: UNK
     Route: 065
  2. RIOCIGUAT [Suspect]
     Active Substance: RIOCIGUAT
     Dosage: 2 MG, UNK
     Route: 065
  3. AMLODIPINE [Concomitant]
     Active Substance: AMLODIPINE BESYLATE
  4. MACITENTAN [Suspect]
     Active Substance: MACITENTAN
     Indication: PULMONARY ARTERIAL HYPERTENSION
     Dosage: 10 MG, QD
     Route: 048
     Dates: start: 20140508, end: 20160422

REACTIONS (7)
  - Dizziness [Unknown]
  - Hypokinesia [Unknown]
  - Pain [Unknown]
  - Dyspepsia [Unknown]
  - Death [Fatal]
  - Diarrhoea [Unknown]
  - Neck pain [Unknown]

NARRATIVE: CASE EVENT DATE: 20160422
